FAERS Safety Report 9789844 (Version 1)
Quarter: 2013Q4

REPORT INFORMATION
  Report Type: Spontaneous
  Country: US (occurrence: None)
  Receive Date: 20131230
  Receipt Date: 20131230
  Transmission Date: 20140711
  Serious: Yes (Other)
  Sender: FDA-Public Use
  Company Number: None

PATIENT
  Age: 9 Year
  Sex: Male
  Weight: 30.84 kg

DRUGS (1)
  1. TAMIFLU [Suspect]
     Indication: INFLUENZA VIRUS TEST POSITIVE
     Dosage: 1 CAPSULE , 1 PILL ONLY
     Route: 048

REACTIONS (9)
  - Abnormal behaviour [None]
  - Screaming [None]
  - Discomfort [None]
  - Confusional state [None]
  - Restlessness [None]
  - Eye movement disorder [None]
  - Delusion [None]
  - Hallucination [None]
  - Urticaria [None]
